FAERS Safety Report 8621988-9 (Version None)
Quarter: 2012Q3

REPORT INFORMATION
  Report Type: 
  Country: None (occurrence: None)
  Receive Date: 20120823
  Receipt Date: 20120823
  Transmission Date: 20120928
  Serious: Yes (Hospitalization, Other)
  Sender: FDA-Public Use
  Company Number: None

PATIENT
  Age: 55 Year
  Sex: Male
  Weight: 98.4306 kg

DRUGS (1)
  1. EGRIFTA [Suspect]
     Indication: LIPODYSTROPHY ACQUIRED
     Dosage: 2 MG DAILY SQ
     Route: 058

REACTIONS (4)
  - WEIGHT DECREASED [None]
  - DIABETES MELLITUS [None]
  - POLYDIPSIA [None]
  - POLYURIA [None]
